FAERS Safety Report 20485269 (Version 1)
Quarter: 2022Q1

REPORT INFORMATION
  Report Type: Spontaneous
  Country: US (occurrence: US)
  Receive Date: 20220217
  Receipt Date: 20220217
  Transmission Date: 20220423
  Serious: No
  Sender: FDA-Public Use
  Company Number: US-009507513-2201USA004529

PATIENT
  Age: 26 Year
  Sex: Male

DRUGS (8)
  1. ZOLINZA [Suspect]
     Active Substance: VORINOSTAT
     Indication: Nephroblastoma
     Dosage: UNK
  2. DACTINOMYCIN [Concomitant]
     Active Substance: DACTINOMYCIN
     Indication: Nephroblastoma
  3. VINCRISTINE [Concomitant]
     Active Substance: VINCRISTINE
     Indication: Nephroblastoma
  4. DOXORUBICIN [Concomitant]
     Active Substance: DOXORUBICIN
     Indication: Nephroblastoma
  5. CYCLOPHOSPHAMIDE [Concomitant]
     Active Substance: CYCLOPHOSPHAMIDE
     Indication: Nephroblastoma
  6. ETOPOSIDE [Concomitant]
     Active Substance: ETOPOSIDE
     Indication: Nephroblastoma
  7. CARBOPLATIN [Concomitant]
     Active Substance: CARBOPLATIN
     Indication: Nephroblastoma
  8. PACLITAXEL [Concomitant]
     Active Substance: PACLITAXEL
     Indication: Nephroblastoma

REACTIONS (1)
  - Product use in unapproved indication [Unknown]
